FAERS Safety Report 6364100-1 (Version None)
Quarter: 2009Q3

REPORT INFORMATION
  Report Type: 
  Country: None (occurrence: None)
  Receive Date: 20090919
  Receipt Date: 20090715
  Transmission Date: 20100115
  Serious: No
  Sender: FDA-Public Use
  Company Number: US-ABBOTT-09P-163-0579201-00

PATIENT
  Sex: Female
  Weight: 46.308 kg

DRUGS (6)
  1. HUMIRA [Suspect]
     Indication: RHEUMATOID ARTHRITIS
     Dates: start: 20050601, end: 20090623
  2. HUMIRA [Suspect]
     Dates: start: 20090623
  3. VITAMINS [Concomitant]
     Indication: DRUG USE FOR UNKNOWN INDICATION
  4. CALCIUM [Concomitant]
     Indication: DRUG USE FOR UNKNOWN INDICATION
  5. IRON [Concomitant]
     Indication: DRUG USE FOR UNKNOWN INDICATION
  6. MOBIC [Concomitant]
     Indication: DRUG USE FOR UNKNOWN INDICATION

REACTIONS (8)
  - BONE PAIN [None]
  - DRUG INEFFECTIVE [None]
  - FATIGUE [None]
  - FINGER DEFORMITY [None]
  - JOINT SWELLING [None]
  - OEDEMA PERIPHERAL [None]
  - PAIN [None]
  - PAIN OF SKIN [None]
